FAERS Safety Report 5676248-5 (Version None)
Quarter: 2008Q1

REPORT INFORMATION
  Report Type: 
  Country: None (occurrence: None)
  Receive Date: 20080321
  Receipt Date: 20080313
  Transmission Date: 20080703
  Serious: Yes (Life-Threatening, Hospitalization)
  Sender: FDA-Public Use
  Company Number: ES-PFIZER INC-2008023095

PATIENT
  Age: 70 Year
  Sex: Male

DRUGS (5)
  1. CARDYL [Suspect]
     Indication: DYSLIPIDAEMIA
     Dosage: DAILY DOSE:10MG
     Route: 048
  2. ALLOPURINOL [Interacting]
     Indication: HYPERURICAEMIA
     Route: 048
  3. SINTROM [Interacting]
     Indication: ATRIAL FIBRILLATION
     Route: 048
  4. EMCONCOR COR [Concomitant]
     Indication: HYPERTENSION
     Route: 048
  5. DILUTOL HTA [Concomitant]
     Route: 048

REACTIONS (2)
  - DRUG INTERACTION [None]
  - SUBARACHNOID HAEMORRHAGE [None]
